FAERS Safety Report 23276757 (Version 2)
Quarter: 2024Q2

REPORT INFORMATION
  Report Type: Spontaneous
  Country: US (occurrence: US)
  Receive Date: 20231208
  Receipt Date: 20240404
  Transmission Date: 20240716
  Serious: No
  Sender: FDA-Public Use
  Company Number: US-KARYOPHARM-2023KPT002219

PATIENT

DRUGS (6)
  1. XPOVIO [Suspect]
     Active Substance: SELINEXOR
     Indication: Brain neoplasm malignant
     Dosage: 60 MG, WEEKLY
     Route: 048
  2. XPOVIO [Suspect]
     Active Substance: SELINEXOR
     Dosage: 60 MG, QD
     Route: 048
     Dates: start: 20231124, end: 202403
  3. MUCINEX [Concomitant]
     Active Substance: GUAIFENESIN
  4. ONDANSETRON [Concomitant]
     Active Substance: ONDANSETRON
  5. TEMODAR [Concomitant]
     Active Substance: TEMOZOLOMIDE
  6. BENZONATATE [Concomitant]
     Active Substance: BENZONATATE

REACTIONS (2)
  - Off label use [Unknown]
  - No adverse event [Unknown]
